FAERS Safety Report 5966287-9 (Version None)
Quarter: 2008Q4

REPORT INFORMATION
  Report Type: 
  Country: None (occurrence: None)
  Receive Date: 20081125
  Receipt Date: 20081114
  Transmission Date: 20090506
  Serious: Yes (Hospitalization)
  Sender: FDA-Public Use
  Company Number: FI-ELI_LILLY_AND_COMPANY-FI200805001511

PATIENT
  Sex: Male

DRUGS (7)
  1. CYMBALTA [Suspect]
     Indication: DEPRESSION
     Dosage: 30 MG, DAILY (1/D)
     Route: 048
     Dates: start: 20071222, end: 20071226
  2. THYROXIN [Concomitant]
     Indication: HYPERTHYROIDISM
     Dosage: 0.1 MG, DAILY (1/D)
     Route: 048
  3. EMCONCOR [Concomitant]
     Indication: HYPERTENSION
     Dosage: 2.5 MG, DAILY (1/D)
     Route: 048
  4. NORVASC [Concomitant]
     Indication: HYPERTENSION
     Dosage: 5 MG, DAILY (1/D)
     Route: 048
  5. PARA-TABS [Concomitant]
     Indication: PAIN
     Dosage: 500 MG, 3/D
     Route: 048
     Dates: start: 20071207, end: 20080102
  6. PANACOD [Concomitant]
     Indication: PAIN
     Dosage: UNK, 3/D
     Route: 048
     Dates: start: 20071207, end: 20080102
  7. LYRICA [Concomitant]
     Indication: PAIN
     Dosage: 25 MG, 2/D
     Route: 048
     Dates: start: 20071214, end: 20080102

REACTIONS (2)
  - HEPATITIS [None]
  - JAUNDICE [None]
